FAERS Safety Report 12799200 (Version 1)
Quarter: 2016Q3

REPORT INFORMATION
  Report Type: Spontaneous
  Country: FR (occurrence: FR)
  Receive Date: 20160930
  Receipt Date: 20160930
  Transmission Date: 20161109
  Serious: Yes (Death)
  Sender: FDA-Public Use
  Company Number: FR-SA-2016SA178753

PATIENT
  Age: 52 Year
  Sex: Female

DRUGS (4)
  1. SOLUPRED [Concomitant]
     Active Substance: PREDNISOLONE
     Indication: PREMEDICATION
     Dosage: 20 MG ORODISPERSIBLE TABLET
     Route: 048
     Dates: start: 20150122
  2. ZOPHREN [Concomitant]
     Active Substance: ONDANSETRON
     Indication: PREMEDICATION
     Dosage: 8 MG ORAL LYOPHILISATE
     Route: 048
     Dates: start: 20150122
  3. TAXOTERE [Suspect]
     Active Substance: DOCETAXEL
     Indication: BREAST CANCER STAGE II
     Dosage: 80 MG / 4 ML, CONCENTRATE FOR SOLUTION FOR INFUSION
     Route: 042
     Dates: start: 20150122, end: 20150122
  4. ENDOXAN [Suspect]
     Active Substance: CYCLOPHOSPHAMIDE
     Indication: BREAST CANCER STAGE II
     Dosage: 1000 MG, LYOPHILISATE FOR SOLUTION FOR INJECTION?ROUTE: INTRAVENOUS (INFUSION)
     Dates: start: 20150122

REACTIONS (2)
  - Colitis [Fatal]
  - Agranulocytosis [Fatal]

NARRATIVE: CASE EVENT DATE: 20150131
